FAERS Safety Report 18583992 (Version 2)
Quarter: 2020Q4

REPORT INFORMATION
  Report Type: Spontaneous
  Country: US (occurrence: US)
  Receive Date: 20201207
  Receipt Date: 20201216
  Transmission Date: 20210114
  Serious: No
  Sender: FDA-Public Use
  Company Number: US-SAGE-2020SAGE000104

PATIENT
  Age: 31 Year
  Sex: Female

DRUGS (1)
  1. ZULRESSO [Suspect]
     Active Substance: BREXANOLONE
     Indication: PERINATAL DEPRESSION
     Dosage: UNK
     Route: 042
     Dates: start: 20201123, end: 20201126

REACTIONS (2)
  - Therapy non-responder [Unknown]
  - Perinatal depression [Recovering/Resolving]

NARRATIVE: CASE EVENT DATE: 202011
